FAERS Safety Report 20992559 (Version 1)
Quarter: 2022Q2

REPORT INFORMATION
  Report Type: Spontaneous
  Country: US (occurrence: US)
  Receive Date: 20220622
  Receipt Date: 20220622
  Transmission Date: 20220721
  Serious: Yes (Other)
  Sender: FDA-Public Use
  Company Number: US-OTSUKA-2022_032517

PATIENT
  Age: 40 Year
  Sex: Female

DRUGS (2)
  1. REXULTI [Suspect]
     Active Substance: BREXPIPRAZOLE
     Indication: Major depression
     Dosage: 1 MG
     Route: 065
     Dates: end: 20220615
  2. REXULTI [Suspect]
     Active Substance: BREXPIPRAZOLE
     Dosage: 2 MG
     Route: 065

REACTIONS (5)
  - Oculogyric crisis [Unknown]
  - Diplopia [Unknown]
  - Nystagmus [Unknown]
  - Lid lag [Unknown]
  - Therapy change [Unknown]

NARRATIVE: CASE EVENT DATE: 20220615
